FAERS Safety Report 8595712-2 (Version None)
Quarter: 2012Q3

REPORT INFORMATION
  Report Type: 
  Country: None (occurrence: None)
  Receive Date: 20120801
  Receipt Date: 20120720
  Transmission Date: 20120928
  Serious: Yes (Hospitalization)
  Sender: FDA-Public Use
  Company Number: 2012AP002235

PATIENT
  Age: 26 Year
  Sex: Male

DRUGS (6)
  1. MIRTAZAPINE [Suspect]
     Indication: PSYCHOTIC DISORDER
     Dosage: 30 MG;QD;
  2. QUETIAPINE FUMARATE [Suspect]
     Indication: PSYCHOTIC DISORDER
     Dosage: 300 MG; 400 MG; 800 MG;
  3. CLONAZEPAM [Concomitant]
  4. QUETIAPINE FUMARATE [Suspect]
     Indication: DELUSION
     Dosage: 100 MG;Q8H;
  5. HALOPERIDOL [Suspect]
     Indication: PSYCHOTIC DISORDER
  6. DIVALPROEX SODIUM [Suspect]
     Indication: PSYCHOTIC DISORDER
     Dosage: 1500 MG; 2000 MG;QD;

REACTIONS (7)
  - IRRITABILITY [None]
  - OFF LABEL USE [None]
  - INSOMNIA [None]
  - SUICIDAL BEHAVIOUR [None]
  - PSYCHOTIC DISORDER [None]
  - NEUTROPENIA [None]
  - DRUG INTOLERANCE [None]
